FAERS Safety Report 5689609-5 (Version None)
Quarter: 2008Q1

REPORT INFORMATION
  Report Type: 
  Country: None (occurrence: None)
  Receive Date: 20080331
  Receipt Date: 20080327
  Transmission Date: 20080703
  Serious: Yes (Other)
  Sender: FDA-Public Use
  Company Number: US-BOEHRINGER INGELHEIM GMBH, GERMANY-2008-BP-04772BP

PATIENT

DRUGS (1)
  1. MIRAPEX [Suspect]

REACTIONS (1)
  - ARRHYTHMIA SUPRAVENTRICULAR [None]
